FAERS Safety Report 18986144 (Version 1)
Quarter: 2021Q1

REPORT INFORMATION
  Report Type: Spontaneous
  Country: US (occurrence: US)
  Receive Date: 20210309
  Receipt Date: 20210309
  Transmission Date: 20210420
  Serious: No
  Sender: FDA-Public Use
  Company Number: US-TAKEDA-2021TUS013127

PATIENT
  Sex: Male
  Weight: 127 kg

DRUGS (2)
  1. LIALDA [Suspect]
     Active Substance: MESALAMINE
     Indication: CROHN^S DISEASE
     Dosage: 1.2 MILLIGRAM, QD/ 4 PILSS DAILY
     Route: 065
  2. LIALDA [Suspect]
     Active Substance: MESALAMINE
     Dosage: 2 DOSAGE FORM
     Route: 065
     Dates: start: 20201030

REACTIONS (2)
  - Therapy change [Unknown]
  - No adverse event [Unknown]
